FAERS Safety Report 8579638-6 (Version None)
Quarter: 2012Q3

REPORT INFORMATION
  Report Type: 
  Country: None (occurrence: None)
  Receive Date: 20120808
  Receipt Date: 20120730
  Transmission Date: 20120928
  Serious: Yes (Disabling, Other)
  Sender: FDA-Public Use
  Company Number: US-ASTRAZENECA-2012SE54038

PATIENT
  Age: 88 Year
  Sex: Female

DRUGS (1)
  1. FASLODEX [Suspect]
     Route: 030

REACTIONS (3)
  - SCIATIC NERVE INJURY [None]
  - LIMB INJURY [None]
  - MOBILITY DECREASED [None]
